FAERS Safety Report 21350434 (Version 1)
Quarter: 2022Q3

REPORT INFORMATION
  Report Type: Spontaneous
  Country: PL (occurrence: PL)
  Receive Date: 20220919
  Receipt Date: 20220919
  Transmission Date: 20221027
  Serious: Yes (Hospitalization)
  Sender: FDA-Public Use
  Company Number: PL-AstraZeneca-2022A162750

PATIENT
  Age: 31 Year
  Sex: Male

DRUGS (19)
  1. DICLOFENAC [Interacting]
     Active Substance: DICLOFENAC
     Indication: Back pain
     Route: 065
  2. ATORVASTATIN [Interacting]
     Active Substance: ATORVASTATIN
     Indication: Product used for unknown indication
     Route: 065
  3. TADALAFIL [Interacting]
     Active Substance: TADALAFIL
     Indication: Erectile dysfunction
     Route: 065
  4. TADALAFIL [Interacting]
     Active Substance: TADALAFIL
     Indication: Anorgasmia
  5. SERTRALINE [Interacting]
     Active Substance: SERTRALINE HYDROCHLORIDE
     Indication: Back pain
     Dosage: 50 MG IN THE MORNING
     Route: 065
  6. RAMIPRIL [Interacting]
     Active Substance: RAMIPRIL
     Indication: Product used for unknown indication
     Route: 065
  7. ACETAMINOPHEN\TRAMADOL HYDROCHLORIDE [Suspect]
     Active Substance: ACETAMINOPHEN\TRAMADOL HYDROCHLORIDE
     Indication: Back pain
     Dosage: 37.5/325 MG
     Route: 065
  8. ALPRAZOLAM [Interacting]
     Active Substance: ALPRAZOLAM
     Indication: Insomnia
     Dosage: 1 MG BEFORE GOING TO BED
     Route: 065
  9. FUROSEMIDE [Concomitant]
     Active Substance: FUROSEMIDE
     Indication: Cardiac disorder
     Route: 065
  10. MAGNESIUM SULFATE [Concomitant]
     Active Substance: MAGNESIUM SULFATE
     Indication: Back pain
     Route: 065
  11. LORNOXICAM [Concomitant]
     Active Substance: LORNOXICAM
     Indication: Back pain
     Route: 065
  12. BUPRENORPHINE [Concomitant]
     Active Substance: BUPRENORPHINE
     Indication: Sleep disorder
     Dosage: TITRATED DOSE
     Route: 065
  13. BUPRENORPHINE [Concomitant]
     Active Substance: BUPRENORPHINE
     Indication: Back pain
     Dosage: TRANSDERMAL THERAPEUTIC SYSTEM (TTS) AT 17.5 UG/H (HALF A PATCH, 35 UG/H) REPLACED EVERY 72 HOURS
  14. VALPROATE SODIUM [Concomitant]
     Active Substance: VALPROATE SODIUM
     Indication: Back pain
     Route: 065
  15. MORPHINE [Concomitant]
     Active Substance: MORPHINE
     Indication: Back pain
     Route: 065
  16. KETOPROFEN [Concomitant]
     Active Substance: KETOPROFEN
     Indication: Back pain
     Route: 065
  17. KETAMINE [Concomitant]
     Active Substance: KETAMINE
     Indication: Back pain
     Route: 065
  18. AGOMELATINE [Concomitant]
     Active Substance: AGOMELATINE
     Indication: Depression
     Route: 065
  19. METOPROLOL [Concomitant]
     Active Substance: METOPROLOL
     Indication: Cardiac disorder
     Route: 065

REACTIONS (2)
  - Therapy non-responder [Unknown]
  - Drug interaction [Unknown]
